FAERS Safety Report 18123490 (Version 1)
Quarter: 2020Q3

REPORT INFORMATION
  Report Type: Spontaneous
  Country: US (occurrence: US)
  Receive Date: 20200807
  Receipt Date: 20200807
  Transmission Date: 20201103
  Serious: Yes (Other)
  Sender: FDA-Public Use
  Company Number: None

PATIENT
  Age: 37 Year
  Sex: Male
  Weight: 81 kg

DRUGS (4)
  1. METRONIDAZOLE. [Suspect]
     Active Substance: METRONIDAZOLE
     Indication: HELICOBACTER INFECTION
     Route: 048
     Dates: start: 20200729, end: 20200803
  2. BISMUTH SUBSALICYLATE (CVS BISMUTH) 262 MG TABS [Concomitant]
     Dates: start: 20200729
  3. OMEPRAZOLE (PRILOSEC) 20 MG DELAYED RELEASE CAPSULE [Concomitant]
     Dates: start: 20200729
  4. TETRACYCLINE (ACHROMYCIN, SUMYCIN) 500 MG CAPSULE [Concomitant]
     Dates: start: 20200729, end: 20200803

REACTIONS (2)
  - Thinking abnormal [None]
  - Self-injurious ideation [None]

NARRATIVE: CASE EVENT DATE: 20200803
